FAERS Safety Report 14803302 (Version 1)
Quarter: 2018Q2

REPORT INFORMATION
  Report Type: Spontaneous
  Country: US (occurrence: US)
  Receive Date: 20180425
  Receipt Date: 20180425
  Transmission Date: 20180711
  Serious: No
  Sender: FDA-Public Use
  Company Number: US-GLENMARK PHARMACEUTICALS-2018GMK030675

PATIENT

DRUGS (1)
  1. IMIQUIMOD. [Suspect]
     Active Substance: IMIQUIMOD
     Indication: PRECANCEROUS CELLS PRESENT
     Dosage: UNK, ONCE DAILY AT BEDTIME, LIP AREA
     Route: 065
     Dates: start: 20180107, end: 20180108

REACTIONS (2)
  - Product administered at inappropriate site [Unknown]
  - No adverse event [Unknown]

NARRATIVE: CASE EVENT DATE: 20180107
